FAERS Safety Report 4386847-9 (Version None)
Quarter: 2004Q2

REPORT INFORMATION
  Report Type: 
  Country: None (occurrence: None)
  Receive Date: 20040623
  Receipt Date: 20040603
  Transmission Date: 20050107
  Serious: Yes (Hospitalization)
  Sender: FDA-Public Use
  Company Number: USA040669106

PATIENT
  Age: 48 Year
  Sex: Female

DRUGS (1)
  1. GEMZAR [Suspect]
     Indication: BREAST CANCER METASTATIC
     Dates: start: 20030701

REACTIONS (8)
  - ERYTHEMA [None]
  - INFECTION [None]
  - JAW DISORDER [None]
  - OEDEMA PERIPHERAL [None]
  - PERIPHERAL COLDNESS [None]
  - POLYARTERITIS NODOSA [None]
  - SKIN DISORDER [None]
  - SKIN NECROSIS [None]
